FAERS Safety Report 13408928 (Version 3)
Quarter: 2017Q2

REPORT INFORMATION
  Report Type: Spontaneous
  Country: US (occurrence: US)
  Receive Date: 20170406
  Receipt Date: 20170607
  Transmission Date: 20170830
  Serious: No
  Sender: FDA-Public Use
  Company Number: US-JNJFOC-20170109395

PATIENT
  Age: 15 Year
  Sex: Male

DRUGS (39)
  1. RISPERIDONE. [Suspect]
     Active Substance: RISPERIDONE
     Indication: ATTENTION DEFICIT/HYPERACTIVITY DISORDER
     Route: 065
     Dates: start: 20100219
  2. RISPERIDONE. [Suspect]
     Active Substance: RISPERIDONE
     Indication: ATTENTION DEFICIT/HYPERACTIVITY DISORDER
     Route: 065
     Dates: start: 20090817
  3. RISPERIDONE. [Suspect]
     Active Substance: RISPERIDONE
     Indication: ATTENTION DEFICIT/HYPERACTIVITY DISORDER
     Route: 065
     Dates: start: 20081123, end: 20100730
  4. RISPERIDONE. [Suspect]
     Active Substance: RISPERIDONE
     Indication: PARANOIA
     Route: 065
     Dates: start: 20111031
  5. RISPERDAL [Suspect]
     Active Substance: RISPERIDONE
     Indication: ATTENTION DEFICIT/HYPERACTIVITY DISORDER
     Route: 048
     Dates: start: 20120202
  6. RISPERDAL [Suspect]
     Active Substance: RISPERIDONE
     Indication: ATTENTION DEFICIT/HYPERACTIVITY DISORDER
     Route: 048
     Dates: start: 20111031
  7. RISPERDAL [Suspect]
     Active Substance: RISPERIDONE
     Indication: ATTENTION DEFICIT/HYPERACTIVITY DISORDER
     Route: 048
     Dates: start: 20100210
  8. RISPERDAL [Suspect]
     Active Substance: RISPERIDONE
     Indication: ATTENTION DEFICIT/HYPERACTIVITY DISORDER
     Route: 048
     Dates: start: 20051029
  9. RISPERIDONE. [Suspect]
     Active Substance: RISPERIDONE
     Indication: ATTENTION DEFICIT/HYPERACTIVITY DISORDER
     Route: 065
     Dates: start: 20100210
  10. RISPERIDONE. [Suspect]
     Active Substance: RISPERIDONE
     Indication: ATTENTION DEFICIT/HYPERACTIVITY DISORDER
     Route: 065
     Dates: start: 20120202
  11. RISPERDAL [Suspect]
     Active Substance: RISPERIDONE
     Indication: PARANOIA
     Route: 048
     Dates: start: 20051029
  12. RISPERDAL [Suspect]
     Active Substance: RISPERIDONE
     Indication: PARANOIA
     Route: 048
     Dates: start: 20081123, end: 20100730
  13. RISPERDAL [Suspect]
     Active Substance: RISPERIDONE
     Indication: ATTENTION DEFICIT/HYPERACTIVITY DISORDER
     Route: 048
     Dates: start: 20121116
  14. RISPERIDONE. [Suspect]
     Active Substance: RISPERIDONE
     Indication: ATTENTION DEFICIT/HYPERACTIVITY DISORDER
     Route: 065
     Dates: start: 20121116
  15. RISPERIDONE. [Suspect]
     Active Substance: RISPERIDONE
     Indication: PARANOIA
     Route: 065
     Dates: start: 20120202
  16. RISPERDAL [Suspect]
     Active Substance: RISPERIDONE
     Indication: PARANOIA
     Route: 048
     Dates: start: 20100210
  17. RISPERDAL [Suspect]
     Active Substance: RISPERIDONE
     Indication: ATTENTION DEFICIT/HYPERACTIVITY DISORDER
     Route: 048
     Dates: start: 20081123, end: 20100730
  18. RISPERIDONE. [Suspect]
     Active Substance: RISPERIDONE
     Indication: ATTENTION DEFICIT/HYPERACTIVITY DISORDER
     Route: 065
     Dates: start: 20091017
  19. RISPERIDONE. [Suspect]
     Active Substance: RISPERIDONE
     Indication: ATTENTION DEFICIT/HYPERACTIVITY DISORDER
     Route: 065
     Dates: start: 20051029
  20. RISPERIDONE. [Suspect]
     Active Substance: RISPERIDONE
     Indication: PARANOIA
     Route: 065
     Dates: start: 20090817
  21. RISPERDAL [Suspect]
     Active Substance: RISPERIDONE
     Indication: PARANOIA
     Route: 048
     Dates: start: 20111031
  22. RISPERDAL [Suspect]
     Active Substance: RISPERIDONE
     Indication: PARANOIA
     Route: 048
     Dates: start: 20090814
  23. RISPERDAL [Suspect]
     Active Substance: RISPERIDONE
     Indication: PARANOIA
     Route: 048
     Dates: start: 20090120
  24. RISPERIDONE. [Suspect]
     Active Substance: RISPERIDONE
     Indication: PARANOIA
     Route: 065
     Dates: start: 20100210
  25. RISPERIDONE. [Suspect]
     Active Substance: RISPERIDONE
     Indication: PARANOIA
     Route: 065
     Dates: start: 20090429
  26. RISPERDAL [Suspect]
     Active Substance: RISPERIDONE
     Indication: PARANOIA
     Route: 048
     Dates: start: 20091016
  27. RISPERDAL [Suspect]
     Active Substance: RISPERIDONE
     Indication: PARANOIA
     Route: 048
     Dates: start: 20121116
  28. RISPERDAL [Suspect]
     Active Substance: RISPERIDONE
     Indication: ATTENTION DEFICIT/HYPERACTIVITY DISORDER
     Route: 048
     Dates: start: 20090814
  29. RISPERDAL [Suspect]
     Active Substance: RISPERIDONE
     Indication: ATTENTION DEFICIT/HYPERACTIVITY DISORDER
     Route: 048
     Dates: start: 20090120
  30. RISPERIDONE. [Suspect]
     Active Substance: RISPERIDONE
     Indication: PARANOIA
     Route: 065
     Dates: start: 20121116
  31. RISPERIDONE. [Suspect]
     Active Substance: RISPERIDONE
     Indication: PARANOIA
     Route: 065
     Dates: start: 20091017
  32. RISPERIDONE. [Suspect]
     Active Substance: RISPERIDONE
     Indication: PARANOIA
     Route: 065
     Dates: start: 20051029
  33. RISPERIDONE. [Suspect]
     Active Substance: RISPERIDONE
     Indication: PARANOIA
     Route: 065
     Dates: start: 20100219
  34. RISPERDAL [Suspect]
     Active Substance: RISPERIDONE
     Indication: PARANOIA
     Route: 048
     Dates: start: 20120202
  35. RISPERDAL [Suspect]
     Active Substance: RISPERIDONE
     Indication: ATTENTION DEFICIT/HYPERACTIVITY DISORDER
     Route: 048
     Dates: start: 20091016
  36. RISPERIDONE. [Suspect]
     Active Substance: RISPERIDONE
     Indication: ATTENTION DEFICIT/HYPERACTIVITY DISORDER
     Route: 065
     Dates: start: 20111031
  37. RISPERIDONE. [Suspect]
     Active Substance: RISPERIDONE
     Indication: ATTENTION DEFICIT/HYPERACTIVITY DISORDER
     Route: 065
     Dates: start: 20090429
  38. RISPERIDONE. [Suspect]
     Active Substance: RISPERIDONE
     Indication: PARANOIA
     Route: 065
     Dates: start: 20081123, end: 20100730
  39. RISPERIDONE. [Suspect]
     Active Substance: RISPERIDONE
     Indication: PRODUCT USED FOR UNKNOWN INDICATION
     Route: 048

REACTIONS (3)
  - Gynaecomastia [Unknown]
  - Weight increased [Unknown]
  - Emotional disorder [Unknown]

NARRATIVE: CASE EVENT DATE: 20140925
